FAERS Safety Report 10744657 (Version 1)
Quarter: 2015Q1

REPORT INFORMATION
  Report Type: Spontaneous
  Country: US (occurrence: US)
  Receive Date: 20150128
  Receipt Date: 20150128
  Transmission Date: 20150721
  Serious: Yes (Other)
  Sender: FDA-Public Use
  Company Number: US-AMGEN-USASP2015006749

PATIENT
  Sex: Female

DRUGS (1)
  1. PROLIA [Suspect]
     Active Substance: DENOSUMAB
     Indication: PRODUCT USED FOR UNKNOWN INDICATION
     Route: 065

REACTIONS (6)
  - Nerve injury [Unknown]
  - Hypersensitivity [Unknown]
  - Gastric ulcer [Unknown]
  - Toothache [Unknown]
  - Tooth infection [Recovered/Resolved]
  - Mouth swelling [Unknown]
